FAERS Safety Report 5509106-7 (Version None)
Quarter: 2007Q4

REPORT INFORMATION
  Report Type: 
  Country: None (occurrence: None)
  Receive Date: 20071107
  Receipt Date: 20071101
  Transmission Date: 20080405
  Serious: Yes (Hospitalization)
  Sender: FDA-Public Use
  Company Number: AU-ASTRAZENECA-2007AP06685

PATIENT
  Sex: Female

DRUGS (3)
  1. NEXIUM [Suspect]
     Route: 048
  2. AMOXICILLIN [Suspect]
     Route: 048
  3. CLARITHROMYCIN [Suspect]
     Route: 048

REACTIONS (1)
  - ANGINA PECTORIS [None]
